FAERS Safety Report 5853531-1 (Version None)
Quarter: 2008Q3

REPORT INFORMATION
  Report Type: 
  Country: None (occurrence: None)
  Receive Date: 20080822
  Receipt Date: 20080812
  Transmission Date: 20090109
  Serious: Yes (Hospitalization, Other)
  Sender: FDA-Public Use
  Company Number: US-ABBOTT-08P-163-0458503-00

PATIENT
  Sex: Female

DRUGS (16)
  1. HUMIRA [Suspect]
     Indication: CROHN'S DISEASE
     Route: 058
     Dates: start: 20071018, end: 20080714
  2. IRON [Concomitant]
     Indication: DRUG USE FOR UNKNOWN INDICATION
     Route: 048
  3. SCOPALAMINE PATCH [Concomitant]
     Indication: NAUSEA
     Route: 062
  4. SCOPALAMINE PATCH [Concomitant]
     Indication: VOMITING
  5. PREDNISONE TAB [Concomitant]
     Indication: CROHN'S DISEASE
     Route: 048
  6. BUPROPION HCL [Concomitant]
     Indication: DEPRESSION
     Route: 048
  7. BUSPIRONE HYDROCHLORIDE [Concomitant]
     Indication: DEPRESSION
     Route: 048
  8. OMEPRAZOLE MAGNESIUM [Concomitant]
     Indication: DRUG USE FOR UNKNOWN INDICATION
     Route: 048
  9. NORTRIPTYLINE HCL [Concomitant]
     Indication: DEPRESSION
  10. CALCIUM [Concomitant]
     Indication: DRUG USE FOR UNKNOWN INDICATION
     Route: 048
  11. MESALAMINE [Concomitant]
     Indication: CROHN'S DISEASE
  12. METOPROLOL TARTRATE [Concomitant]
     Indication: HYPERTENSION
     Route: 048
  13. OXYCODONE HCL [Concomitant]
     Indication: PAIN
     Route: 048
  14. GLUCATROL [Concomitant]
     Indication: DRUG USE FOR UNKNOWN INDICATION
     Route: 048
  15. BIRTH CONTROL PILLS [Concomitant]
     Indication: CONTRACEPTION
     Route: 048
  16. AZATHIOPRINE [Concomitant]
     Indication: CROHN'S DISEASE
     Route: 048

REACTIONS (19)
  - ABDOMINAL PAIN [None]
  - CATHETER RELATED INFECTION [None]
  - CELLULITIS [None]
  - CHILLS [None]
  - CLOSTRIDIAL INFECTION [None]
  - CROHN'S DISEASE [None]
  - DIARRHOEA [None]
  - DIARRHOEA HAEMORRHAGIC [None]
  - FURUNCLE [None]
  - KLEBSIELLA BACTERAEMIA [None]
  - NAUSEA [None]
  - OROPHARYNGEAL PAIN [None]
  - PULMONARY EMBOLISM [None]
  - PYREXIA [None]
  - RECTAL HAEMORRHAGE [None]
  - RESPIRATORY FAILURE [None]
  - RESPIRATORY TRACT CONGESTION [None]
  - SKIN ULCER [None]
  - VOMITING [None]
